FAERS Safety Report 4913529-4 (Version None)
Quarter: 2006Q1

REPORT INFORMATION
  Report Type: 
  Country: None (occurrence: None)
  Receive Date: 20060210
  Receipt Date: 20060130
  Transmission Date: 20060701
  Serious: Yes (Hospitalization, Other)
  Sender: FDA-Public Use
  Company Number: 2005155941

PATIENT
  Age: 65 Year
  Sex: Female

DRUGS (1)
  1. XALATAN [Suspect]
     Indication: GLAUCOMA
     Dosage: 1 DROP (1 DROP, 1 IN 1 D), OPHTHALMIC
     Route: 047
     Dates: start: 19960101

REACTIONS (10)
  - ANAEMIA [None]
  - BLOOD TRIGLYCERIDES INCREASED [None]
  - GASTRIC CANCER [None]
  - GASTRIC ULCER [None]
  - GOUT [None]
  - HAEMORRHAGE [None]
  - HYPERTENSION [None]
  - HYPOTHYROIDISM [None]
  - RENAL CELL CARCINOMA STAGE UNSPECIFIED [None]
  - WEIGHT DECREASED [None]
